FAERS Safety Report 5212068-3 (Version None)
Quarter: 2007Q1

REPORT INFORMATION
  Report Type: 
  Country: None (occurrence: None)
  Receive Date: 20070118
  Receipt Date: 20070111
  Transmission Date: 20070707
  Serious: Yes (Death)
  Sender: FDA-Public Use
  Company Number: PHBS2007JP00816

PATIENT
  Age: 56 Year
  Sex: Male

DRUGS (2)
  1. ADRENOCORTICOTROPHIC HORMONE [Suspect]
     Indication: MYASTHENIA GRAVIS
     Dosage: UNK, UNK
     Route: 048
  2. NEORAL [Suspect]
     Indication: MYASTHENIA GRAVIS
     Dosage: 300 MG/D
     Route: 048
     Dates: start: 20061222

REACTIONS (2)
  - NASOPHARYNGITIS [None]
  - SEPSIS [None]
